FAERS Safety Report 6711358-2 (Version None)
Quarter: 2010Q2

REPORT INFORMATION
  Report Type: 
  Country: None (occurrence: None)
  Receive Date: 20100505
  Receipt Date: 20100430
  Transmission Date: 20101027
  Serious: Yes (Death, Hospitalization)
  Sender: FDA-Public Use
  Company Number: US-ELI_LILLY_AND_COMPANY-US201003002241

PATIENT
  Sex: Female
  Weight: 61 kg

DRUGS (13)
  1. PEMETREXED [Suspect]
     Indication: NON-SMALL CELL LUNG CANCER STAGE IV
     Dosage: 500 MG/M2, OTHER
     Route: 042
     Dates: start: 20100122
  2. CARBOPLATIN [Suspect]
     Indication: NON-SMALL CELL LUNG CANCER
     Dosage: 6 D/F, OTHER
     Route: 042
     Dates: start: 20100122
  3. BEVACIZUMAB [Suspect]
     Indication: NON-SMALL CELL LUNG CANCER
     Dosage: 15 MG/KG, OTHER
     Route: 042
     Dates: start: 20100122
  4. OXYCONTIN [Concomitant]
     Indication: PAIN
  5. OXYCODONE [Concomitant]
     Indication: PAIN
     Dates: start: 20100113
  6. FENTANYL CITRATE [Concomitant]
     Indication: PAIN
     Dates: start: 20100129
  7. FOLIC ACID [Concomitant]
     Indication: PROPHYLAXIS
     Dosage: UNK, UNK
     Dates: start: 20100121
  8. ZOFRAN [Concomitant]
     Indication: NAUSEA
  9. MIRALAX [Concomitant]
     Indication: CONSTIPATION
     Dates: start: 20100225
  10. SODIUM PHOSPHATES [Concomitant]
     Indication: CONSTIPATION
     Route: 054
     Dates: start: 20100225, end: 20100225
  11. MEGACE [Concomitant]
     Indication: DECREASED APPETITE
     Dates: start: 20100225
  12. VITAMIN B-12 [Concomitant]
     Indication: PROPHYLAXIS
     Dates: start: 20100121
  13. ADVAIR DISKUS 100/50 [Concomitant]
     Indication: DYSPNOEA
     Dates: start: 20091201

REACTIONS (3)
  - CONSTIPATION [None]
  - LARGE INTESTINE PERFORATION [None]
  - SEPSIS [None]
